FAERS Safety Report 5095194-1 (Version None)
Quarter: 2006Q3

REPORT INFORMATION
  Report Type: 
  Country: None (occurrence: None)
  Receive Date: 20060901
  Receipt Date: 20060605
  Transmission Date: 20061208
  Serious: Yes (Life-Threatening, Hospitalization)
  Sender: FDA-Public Use
  Company Number: ES-GLAXOSMITHKLINE-B0426741A

PATIENT
  Age: 35 Year
  Sex: Male

DRUGS (1)
  1. TRIZIVIR [Suspect]
     Indication: HIV INFECTION
     Route: 048
     Dates: start: 20060214, end: 20060525

REACTIONS (4)
  - ASTHENIA [None]
  - BICYTOPENIA [None]
  - PALLOR [None]
  - PANCYTOPENIA [None]
